FAERS Safety Report 11263629 (Version 1)
Quarter: 2015Q3

REPORT INFORMATION
  Report Type: Spontaneous
  Country: US (occurrence: US)
  Receive Date: 20150713
  Receipt Date: 20150713
  Transmission Date: 20151125
  Serious: No
  Sender: FDA-Public Use
  Company Number: US-TEVA-572479USA

PATIENT
  Sex: Female

DRUGS (1)
  1. ACITRETIN. [Suspect]
     Active Substance: ACITRETIN
     Route: 065

REACTIONS (4)
  - Skin exfoliation [Unknown]
  - Onychomadesis [Unknown]
  - Alopecia [Unknown]
  - Madarosis [Unknown]
